FAERS Safety Report 25722188 (Version 1)
Quarter: 2025Q3

REPORT INFORMATION
  Report Type: Spontaneous
  Country: US (occurrence: US)
  Receive Date: 20250825
  Receipt Date: 20250825
  Transmission Date: 20251020
  Serious: Yes (Other)
  Sender: SANOFI AVENTIS
  Company Number: US-DialogSolutions-SAAVPROD-PI812078-C1

PATIENT
  Age: 4 Year
  Sex: Male

DRUGS (7)
  1. ANTI-THYMOCYTE GLOBULIN (RABBIT) NOS [Suspect]
     Active Substance: LAPINE T-LYMPHOCYTE IMMUNE GLOBULIN
     Indication: Transplant rejection
     Dosage: 1.5 MG/KG, QD
  2. METHYLPREDNISOLONE HEMISUCCINATE [Suspect]
     Active Substance: METHYLPREDNISOLONE HEMISUCCINATE
     Indication: Transplant rejection
     Dosage: 15 MG/KG, QD
     Route: 042
  3. PREDNISONE [Suspect]
     Active Substance: PREDNISONE
  4. AZATHIOPRINE [Suspect]
     Active Substance: AZATHIOPRINE
  5. BASILIXIMAB [Suspect]
     Active Substance: BASILIXIMAB
     Indication: Urinary tract obstruction
  6. TACROLIMUS [Suspect]
     Active Substance: TACROLIMUS
     Indication: Urinary tract obstruction
  7. MYCOPHENOLATE MOFETIL [Suspect]
     Active Substance: MYCOPHENOLATE MOFETIL
     Indication: Urinary tract obstruction

REACTIONS (3)
  - Colitis [Unknown]
  - Neutropenia [Unknown]
  - Adenovirus infection [Unknown]
